FAERS Safety Report 14517215 (Version 2)
Quarter: 2018Q1

REPORT INFORMATION
  Report Type: Spontaneous
  Country: CL (occurrence: CL)
  Receive Date: 20180212
  Receipt Date: 20180215
  Transmission Date: 20180509
  Serious: Yes (Hospitalization, Other)
  Sender: FDA-Public Use
  Company Number: CL-ROCHE-2066459

PATIENT
  Age: 54 Year
  Sex: Male

DRUGS (2)
  1. GAZYVA [Suspect]
     Active Substance: OBINUTUZUMAB
     Indication: B-CELL LYMPHOMA
     Route: 065
     Dates: end: 201712
  2. BENDAMUSTINE [Concomitant]
     Active Substance: BENDAMUSTINE
     Route: 065
     Dates: end: 201712

REACTIONS (4)
  - Amnesia [Unknown]
  - Pyrexia [Unknown]
  - Encephalitis [Recovered/Resolved]
  - Nervous system disorder [Unknown]

NARRATIVE: CASE EVENT DATE: 201801
